FAERS Safety Report 8329188-7 (Version None)
Quarter: 2012Q2

REPORT INFORMATION
  Report Type: 
  Country: None (occurrence: None)
  Receive Date: 20120502
  Receipt Date: 20120420
  Transmission Date: 20120825
  Serious: Yes (Hospitalization)
  Sender: FDA-Public Use
  Company Number: FR-PFIZER INC-2012099461

PATIENT
  Age: 91 Year
  Sex: Male

DRUGS (8)
  1. FLAGYL [Suspect]
     Indication: PEPTIC ULCER
     Dosage: UNK
     Route: 048
     Dates: start: 20120307, end: 20120309
  2. POLYETHYLENE GLYCOL [Concomitant]
     Dosage: UNK
  3. AMLODIPINE BESYLATE [Concomitant]
     Dosage: 10 UNK, UNK
  4. APROVEL [Concomitant]
     Dosage: 75 MG, UNKNOWN
  5. CLARITHROMYCIN [Suspect]
     Indication: PEPTIC ULCER
     Dosage: UNK
     Route: 048
     Dates: start: 20120307
  6. AMOXICILLIN [Suspect]
     Indication: PEPTIC ULCER
     Dosage: UNK
     Route: 048
     Dates: start: 20120307
  7. FLAGYL [Suspect]
     Dosage: UNK
     Route: 042
     Dates: start: 20120309, end: 20120315
  8. PANTOPRAZOLE [Suspect]
     Indication: PEPTIC ULCER
     Dosage: UNK
     Route: 048
     Dates: start: 20120307

REACTIONS (1)
  - ORGANISING PNEUMONIA [None]
